FAERS Safety Report 4507626-5 (Version None)
Quarter: 2004Q4

REPORT INFORMATION
  Report Type: 
  Country: None (occurrence: None)
  Receive Date: 20041123
  Receipt Date: 20041117
  Transmission Date: 20050328
  Serious: Yes (Death, Hospitalization)
  Sender: FDA-Public Use
  Company Number: JP-BRISTOL-MYERS SQUIBB COMPANY-12770061

PATIENT
  Sex: Male

DRUGS (12)
  1. BRIPLATIN [Suspect]
     Indication: GASTRIC CANCER
     Dosage: INITIATED THERAPY:  05-AUG-2003
     Route: 041
     Dates: start: 20040727, end: 20040727
  2. KYTRIL [Suspect]
     Indication: GASTRIC CANCER
     Route: 041
     Dates: start: 20030909, end: 20040727
  3. SAXIZON [Suspect]
     Indication: GASTRIC CANCER
     Route: 041
     Dates: start: 20030909, end: 20040727
  4. TS-1 [Suspect]
     Indication: GASTRIC CANCER
     Route: 048
     Dates: start: 20030805, end: 20040719
  5. BAYASPIRIN [Concomitant]
     Route: 048
  6. PLETAL [Concomitant]
     Route: 048
  7. ALDACTONE-A [Concomitant]
     Route: 048
  8. DIOVAN [Concomitant]
     Route: 048
  9. SIGMART [Concomitant]
     Route: 048
  10. CARVEDILOL [Concomitant]
     Route: 048
  11. MEXITIL [Concomitant]
     Route: 048
  12. LENDORMIN [Concomitant]
     Route: 048

REACTIONS (3)
  - ANAPHYLACTIC SHOCK [None]
  - HYPOXIC ENCEPHALOPATHY [None]
  - PULSE ABSENT [None]
